FAERS Safety Report 8389938-0 (Version None)
Quarter: 2012Q2

REPORT INFORMATION
  Report Type: 
  Country: None (occurrence: None)
  Receive Date: 20120518
  Receipt Date: 20120503
  Transmission Date: 20120825
  Serious: Yes (Hospitalization, Other)
  Sender: FDA-Public Use
  Company Number: 2012SP019849

PATIENT
  Sex: Female

DRUGS (3)
  1. RIBAVIRIN [Suspect]
     Indication: HEPATITIS C
     Dates: start: 20120308
  2. VICTRELIS [Suspect]
     Indication: HEPATITIS C
     Dates: start: 20120412
  3. PEG-INTRON [Suspect]
     Indication: HEPATITIS C
     Dates: start: 20120308

REACTIONS (15)
  - CONTUSION [None]
  - WEIGHT DECREASED [None]
  - FATIGUE [None]
  - CRYING [None]
  - NAUSEA [None]
  - DECREASED APPETITE [None]
  - DRY THROAT [None]
  - FALL [None]
  - DYSGEUSIA [None]
  - RASH [None]
  - DIZZINESS [None]
  - ASTHENIA [None]
  - BLOOD PRESSURE DECREASED [None]
  - INSOMNIA [None]
  - DRY MOUTH [None]
